FAERS Safety Report 8612049-3 (Version None)
Quarter: 2012Q3

REPORT INFORMATION
  Report Type: 
  Country: None (occurrence: None)
  Receive Date: 20120809
  Receipt Date: 20120730
  Transmission Date: 20120928
  Serious: Yes (Other)
  Sender: FDA-Public Use
  Company Number: JP-2012-15959

PATIENT
  Age: 67 Year
  Sex: Male
  Weight: 53 kg

DRUGS (9)
  1. SAMSCA [Suspect]
     Indication: FLUID RETENTION
     Dosage: 15 MG MILLIGRAM(S), QAM, ORAL
     Route: 048
     Dates: start: 20111213, end: 20111224
  2. EPLERENONE [Concomitant]
  3. TENOMIN (ATENOLOL) TABLET [Concomitant]
  4. WARFARIN SODIUM [Concomitant]
  5. HALFDIGOXIN (DIGOXIN) TABLET [Concomitant]
  6. AMOBAN (ZOPICLONE) TABLET [Concomitant]
  7. PREMIENT (HYDROCHLOROTHIAZIDE, LOSARTAN POTASSIUM) TABLET [Suspect]
     Indication: CARDIAC FAILURE
     Dosage: 1 DF DOSAGE FORM, DAILY DOSE, ORAL
     Route: 048
     Dates: end: 20111218
  8. TICLOPIDINE HCL [Concomitant]
  9. LASIX [Concomitant]

REACTIONS (3)
  - HYPOTENSION [None]
  - THIRST [None]
  - WHITE BLOOD CELL COUNT DECREASED [None]
